FAERS Safety Report 23709024 (Version 4)
Quarter: 2024Q2

REPORT INFORMATION
  Report Type: Spontaneous
  Country: US (occurrence: US)
  Receive Date: 20240404
  Receipt Date: 20240426
  Transmission Date: 20240715
  Serious: No
  Sender: FDA-Public Use
  Company Number: US-PFIZER INC-202400074937

PATIENT
  Age: 16 Year
  Sex: Male
  Weight: 60.3 kg

DRUGS (2)
  1. GENOTROPIN [Suspect]
     Active Substance: SOMATROPIN
     Indication: Growth hormone deficiency
     Dosage: 1.6 MILLIGRAMS, DAILY
  2. NORDITROPIN [Concomitant]
     Active Substance: SOMATROPIN
     Dosage: UNK

REACTIONS (2)
  - Poor quality device used [Unknown]
  - Injection site discharge [Unknown]

NARRATIVE: CASE EVENT DATE: 20240301
